FAERS Safety Report 4676555-9 (Version None)
Quarter: 2005Q2

REPORT INFORMATION
  Report Type: 
  Country: None (occurrence: None)
  Receive Date: 20050526
  Receipt Date: 20050215
  Transmission Date: 20051028
  Serious: Yes (Death)
  Sender: FDA-Public Use
  Company Number: 2005S1000572

PATIENT
  Age: 67 Year
  Sex: Male
  Weight: 160 kg

DRUGS (26)
  1. CLOZAPINE [Suspect]
     Indication: DEMENTIA
     Dosage: 50 MG; QAM; PO
     Route: 048
     Dates: start: 20041203
  2. CLOZAPINE [Suspect]
     Indication: SCHIZOPHRENIA
     Dosage: 50 MG; QAM; PO
     Route: 048
     Dates: start: 20041203
  3. CLOZAPINE [Suspect]
     Indication: DEMENTIA
     Dosage: 50 MG; QAM; PO
     Route: 048
     Dates: start: 20041203
  4. CLOZAPINE [Suspect]
     Indication: SCHIZOPHRENIA
     Dosage: 50 MG; QAM; PO
     Route: 048
     Dates: start: 20041203
  5. CLOZAPINE [Suspect]
     Indication: DEMENTIA
     Dosage: SEE IMAGE
     Route: 048
     Dates: start: 20041203
  6. CLOZAPINE [Suspect]
     Indication: SCHIZOPHRENIA
     Dosage: SEE IMAGE
     Route: 048
     Dates: start: 20041203
  7. CLOZAPINE [Suspect]
     Indication: DEMENTIA
     Dosage: SEE IMAGE
     Route: 048
     Dates: start: 20041203
  8. CLOZAPINE [Suspect]
     Indication: SCHIZOPHRENIA
     Dosage: SEE IMAGE
     Route: 048
     Dates: start: 20041203
  9. SENNA FRUIT [Concomitant]
  10. ZOLPIDEM TARTRATE [Concomitant]
  11. TRIAMCINOLONE ACETONIDE [Concomitant]
  12. CETIRIZINE HYDROCHLORIDE [Concomitant]
  13. DEPHENHYDRAMINE [Concomitant]
  14. HYDROCORTISONE [Concomitant]
  15. FUROSEMIDE [Concomitant]
  16. PERPHENAZINE [Concomitant]
  17. CLARK'S SOLUTION [Concomitant]
  18. MAGNESIUM HYDROXIDE/ALUMINIUM HYDROXIDE GEL [Concomitant]
  19. TERIBINAFINE HYDROCHLORIDE [Concomitant]
  20. PANTOPRAZOLE [Concomitant]
  21. GATIFLOXACIN [Concomitant]
  22. PARACETAMOL [Concomitant]
  23. TRAZODONE [Concomitant]
  24. TAMSULOSIN HCL [Concomitant]
  25. DICLOFENAC [Concomitant]
  26. BACLOFEN [Concomitant]

REACTIONS (6)
  - AGRANULOCYTOSIS [None]
  - HYPOTENSION [None]
  - JAUNDICE CHOLESTATIC [None]
  - MUSCLE NECROSIS [None]
  - SEPTIC NECROSIS [None]
  - WOUND COMPLICATION [None]
